FAERS Safety Report 23487254 (Version 1)
Quarter: 2024Q1

REPORT INFORMATION
  Report Type: Spontaneous
  Country: AU (occurrence: AU)
  Receive Date: 20240206
  Receipt Date: 20240206
  Transmission Date: 20240409
  Serious: Yes (Other)
  Sender: FDA-Public Use
  Company Number: AU-Korea IPSEN-2024-01259

PATIENT
  Age: 61 Year
  Sex: Female

DRUGS (1)
  1. DYSPORT [Suspect]
     Active Substance: ABOBOTULINUMTOXINA
     Indication: Product used for unknown indication
     Route: 065

REACTIONS (8)
  - Hyperlipidaemia [Unknown]
  - Diabetes mellitus [Unknown]
  - Erythema [Unknown]
  - Infection [Unknown]
  - Inflammation [Unknown]
  - Malaise [Unknown]
  - Pyrexia [Unknown]
  - Swelling face [Unknown]

NARRATIVE: CASE EVENT DATE: 20230429
